FAERS Safety Report 6434429-7 (Version None)
Quarter: 2009Q4

REPORT INFORMATION
  Report Type: 
  Country: None (occurrence: None)
  Receive Date: 20091110
  Receipt Date: 20091008
  Transmission Date: 20100525
  Serious: No
  Sender: FDA-Public Use
  Company Number: US-BAYER-200915611BCC

PATIENT
  Sex: Female

DRUGS (2)
  1. FINACEA [Suspect]
     Indication: DRUG USE FOR UNKNOWN INDICATION
     Route: 061
  2. FINACEA [Suspect]
     Route: 061

REACTIONS (4)
  - ACNE [None]
  - BURNING SENSATION [None]
  - DRY SKIN [None]
  - ROSACEA [None]
